FAERS Safety Report 8579086-9 (Version None)
Quarter: 2012Q3

REPORT INFORMATION
  Report Type: 
  Country: None (occurrence: None)
  Receive Date: 20120808
  Receipt Date: 20120801
  Transmission Date: 20120928
  Serious: Yes (Hospitalization, Other)
  Sender: FDA-Public Use
  Company Number: ES-ROCHE-1055329

PATIENT
  Sex: Male
  Weight: 74 kg

DRUGS (16)
  1. FUROSEMIDE [Concomitant]
     Indication: FLUID RETENTION
     Route: 048
     Dates: start: 20100101
  2. DEXAMETHASONE [Concomitant]
     Indication: VOMITING
     Route: 048
     Dates: start: 20120316, end: 20120317
  3. HERCEPTIN [Suspect]
     Indication: GASTRIC CANCER
     Dosage: LAST DOSE PRIOR TO SAE: 15/MAR/2012 AT 596MG
     Route: 042
     Dates: start: 20120315
  4. XELODA [Suspect]
     Indication: GASTRIC CANCER
     Dosage: LAST DOSE PRIOR TO SAE: 15/MAR/2012 AT 1000MG/M2
     Route: 048
     Dates: start: 20120315
  5. PERTUZUMAB [Suspect]
     Indication: GASTRIC CANCER
     Dosage: LAST DOSE PRIOR TO SAE: 15/MAR/2012 AT 840MG
     Route: 042
     Dates: start: 20120315
  6. EMEND [Concomitant]
     Indication: VOMITING
     Route: 048
     Dates: start: 20120315, end: 20120315
  7. ASPIRIN [Concomitant]
     Route: 048
     Dates: start: 20100101
  8. LOSARTAN POTASSIUM [Concomitant]
     Indication: HYPERTENSION
     Route: 048
     Dates: start: 20111201
  9. METFORMIN HYDROCHLORIDE [Concomitant]
     Indication: DIABETES MELLITUS
     Route: 048
     Dates: start: 20100101
  10. LIPOSIT (SPAIN) [Concomitant]
     Indication: HYPERCHOLESTEROLAEMIA
     Route: 048
     Dates: start: 20070101
  11. ACETAMINOPHEN [Concomitant]
     Indication: PROPHYLAXIS
     Route: 042
     Dates: start: 20120315, end: 20120315
  12. CISPLATIN [Suspect]
     Indication: GASTRIC CANCER
     Dosage: LAST DOSE PRIOR TO SAE: 15/MAR/2012 AT 80MG/M2
     Route: 042
     Dates: start: 20120315
  13. ALLOPURINOL [Concomitant]
     Indication: HYPERURICAEMIA
     Route: 048
     Dates: start: 20070101
  14. POLARAMINE [Concomitant]
     Indication: PROPHYLAXIS
     Route: 042
     Dates: start: 20120315, end: 20120315
  15. DEXAMETASONA [Concomitant]
     Indication: PROPHYLAXIS
     Route: 042
     Dates: start: 20120315, end: 20120315
  16. EMEND [Concomitant]
     Route: 048
     Dates: start: 20120316, end: 20120317

REACTIONS (1)
  - ENTERITIS [None]
